FAERS Safety Report 9625466 (Version 1)
Quarter: 2013Q4

REPORT INFORMATION
  Report Type: Spontaneous
  Country: US (occurrence: None)
  Receive Date: 20131015
  Receipt Date: 20131015
  Transmission Date: 20140711
  Serious: Yes (Hospitalization)
  Sender: FDA-Public Use
  Company Number: None

PATIENT
  Age: 61 Year
  Sex: Female
  Weight: 104.78 kg

DRUGS (1)
  1. PIOGLITAZONE [Suspect]
     Indication: TYPE 2 DIABETES MELLITUS
     Dosage: 15-30 MG.
     Route: 048
     Dates: start: 20040101, end: 20090101

REACTIONS (4)
  - Bladder pain [None]
  - Bladder cancer [None]
  - Urinary tract infection [None]
  - Weight loss poor [None]
